FAERS Safety Report 26215241 (Version 1)
Quarter: 2025Q4

REPORT INFORMATION
  Report Type: Spontaneous
  Country: US (occurrence: US)
  Receive Date: 20251230
  Receipt Date: 20251230
  Transmission Date: 20260118
  Serious: Yes (Death, Hospitalization, Other)
  Sender: AMNEAL
  Company Number: US-AMNEAL PHARMACEUTICALS-2025-AMRX-05000

PATIENT
  Age: 20 Year
  Sex: Male

DRUGS (1)
  1. COLCHICINE [Suspect]
     Active Substance: COLCHICINE
     Indication: Product used for unknown indication
     Dosage: 72 MG
     Route: 048

REACTIONS (11)
  - Pulseless electrical activity [Fatal]
  - Shock [Fatal]
  - Completed suicide [Fatal]
  - Acidosis [Fatal]
  - Acute kidney injury [Fatal]
  - Haematemesis [Fatal]
  - Hypotension [Fatal]
  - Intentional overdose [Unknown]
  - Toxicity to various agents [Fatal]
  - Multiple organ dysfunction syndrome [Fatal]
  - Disseminated intravascular coagulation [Fatal]
